FAERS Safety Report 8981022 (Version 2)
Quarter: 2013Q1

REPORT INFORMATION
  Report Type: Spontaneous
  Country: US (occurrence: US)
  Receive Date: 20121221
  Receipt Date: 20130104
  Transmission Date: 20140127
  Serious: Yes (Other)
  Sender: FDA-Public Use
  Company Number: US-PFIZER INC-2012321756

PATIENT
  Sex: Female

DRUGS (3)
  1. CELEBREX [Suspect]
     Dosage: UNK, 1XDAY
  2. CELEBREX [Suspect]
     Dosage: UNK, 1XDAY (RESTARTED)
  3. GLUCOTROL XL [Suspect]
     Dosage: UNK

REACTIONS (9)
  - Cardiac murmur [Unknown]
  - Surgery [Unknown]
  - Amnesia [Unknown]
  - Renal disorder [Unknown]
  - Blood pressure decreased [Unknown]
  - Swelling [Unknown]
  - Malaise [Unknown]
  - Asthenia [Unknown]
  - Incorrect dose administered [Unknown]
